FAERS Safety Report 7793251-X (Version None)
Quarter: 2011Q4

REPORT INFORMATION
  Report Type: 
  Country: None (occurrence: None)
  Receive Date: 20111003
  Receipt Date: 20110922
  Transmission Date: 20120403
  Serious: Yes (Hospitalization, Other)
  Sender: FDA-Public Use
  Company Number: US-BAYER-2011-009454

PATIENT
  Age: 31 Year
  Sex: Female
  Weight: 72.562 kg

DRUGS (16)
  1. KETOROLAC TROMETHAMINE [Concomitant]
  2. LEXAPRO [Concomitant]
  3. XANAX [Concomitant]
  4. ULTRAM [Concomitant]
  5. DARVOCET [Concomitant]
  6. FLUCONAZOLE [Concomitant]
  7. MELOXICAM [Concomitant]
  8. VICODIN [Concomitant]
  9. IBUPROFEN [Concomitant]
  10. YASMIN [Suspect]
     Dosage: UNK
     Dates: start: 20040824, end: 20040919
  11. YASMIN [Suspect]
     Dosage: UNK
     Dates: start: 20041113
  12. YASMIN [Suspect]
     Dosage: UNK
     Dates: start: 20040401, end: 20070103
  13. ASCORBIC ACID [Concomitant]
  14. ACIDOPHILUS [Concomitant]
  15. TRAZODONE HYDROCHLORIDE [Concomitant]
  16. YASMIN [Suspect]
     Dosage: UNK
     Dates: start: 20050210, end: 20050313

REACTIONS (13)
  - PAIN [None]
  - FEAR [None]
  - HYPOAESTHESIA [None]
  - ANXIETY [None]
  - INJURY [None]
  - OEDEMA PERIPHERAL [None]
  - PULMONARY THROMBOSIS [None]
  - DEEP VEIN THROMBOSIS [None]
  - EMOTIONAL DISTRESS [None]
  - MENTAL DISORDER [None]
  - THROMBOSIS [None]
  - PULMONARY EMBOLISM [None]
  - PAIN IN EXTREMITY [None]
